FAERS Safety Report 11003808 (Version 1)
Quarter: 2015Q2

REPORT INFORMATION
  Report Type: Spontaneous
  Country: US (occurrence: None)
  Receive Date: 20150408
  Receipt Date: 20150408
  Transmission Date: 20150821
  Serious: Yes (Disabling)
  Sender: FDA-Public Use
  Company Number: None

PATIENT
  Age: 17 Year
  Sex: Female
  Weight: 104.33 kg

DRUGS (2)
  1. WOMEN^S MULTIVITAMIN [Concomitant]
  2. NUVARING [Suspect]
     Active Substance: ETHINYL ESTRADIOL\ETONOGESTREL
     Indication: CONTRACEPTION
     Dosage: EVER 4 WEEKS
     Route: 067
     Dates: start: 20150319, end: 20150406

REACTIONS (6)
  - Back pain [None]
  - Weight decreased [None]
  - Nausea [None]
  - Vomiting [None]
  - Decreased appetite [None]
  - Loss of employment [None]

NARRATIVE: CASE EVENT DATE: 20150323
